FAERS Safety Report 22530369 (Version 1)
Quarter: 2023Q2

REPORT INFORMATION
  Report Type: Spontaneous
  Country: CN (occurrence: CN)
  Receive Date: 20230607
  Receipt Date: 20230607
  Transmission Date: 20230721
  Serious: Yes (Other)
  Sender: FDA-Public Use
  Company Number: CN-PFIZER INC-PV202300099074

PATIENT
  Age: 6 Year
  Sex: Male
  Weight: 23.7 kg

DRUGS (4)
  1. CYTARABINE [Suspect]
     Active Substance: CYTARABINE
     Indication: Neoplasm
     Dosage: 35 MG, 1X/DAY
     Route: 041
     Dates: start: 20230517, end: 20230517
  2. METHOTREXATE SODIUM [Suspect]
     Active Substance: METHOTREXATE SODIUM
     Indication: Neoplasm
     Dosage: 0.9 G, 1X/DAY
     Route: 041
     Dates: start: 20230517, end: 20230517
  3. DOXORUBICIN HYDROCHLORIDE [Suspect]
     Active Substance: DOXORUBICIN HYDROCHLORIDE
     Indication: Neoplasm
     Dosage: 20 MG, 1X/DAY
     Route: 041
     Dates: start: 20230519, end: 20230521
  4. VINCRISTINE SULFATE [Suspect]
     Active Substance: VINCRISTINE SULFATE
     Indication: Neoplasm
     Dosage: 1.3 MG, 1X/DAY
     Route: 041
     Dates: start: 20230517, end: 20230517

REACTIONS (1)
  - Liver injury [Unknown]

NARRATIVE: CASE EVENT DATE: 20230521
